FAERS Safety Report 8792165 (Version 1)
Quarter: 2012Q4

REPORT INFORMATION
  Report Type: 
  Country: US (occurrence: US)
  Receive Date: 20120918
  Receipt Date: 20120918
  Transmission Date: 20130627
  Serious: No
  Sender: FDA-Public Use
  Company Number: US-VERTEX PHARMACEUTICAL INC.-AE-2012-011059

PATIENT
  Sex: Male

DRUGS (11)
  1. INCIVEK [Suspect]
     Indication: HEPATITIS C
     Route: 048
  2. PEGYLATED INTERFERON ALFA-2A [Concomitant]
     Indication: HEPATITIS C
  3. RIBAVIRIN [Concomitant]
     Indication: HEPATITIS C
  4. PREDNISONE [Concomitant]
  5. DDI [Concomitant]
  6. ALPRAZOLAM [Concomitant]
  7. AMBIEN [Concomitant]
  8. PRILOSEC                           /00661201/ [Concomitant]
  9. CELEXA                             /00582602/ [Concomitant]
     Dosage: 40 mg, UNK
  10. CALCIUM GLUCONATE [Concomitant]
     Dosage: 1500 mg, qd
  11. VITAMIN D /00107901/ [Concomitant]
     Dosage: 10001 ut, UNK
     Route: 048

REACTIONS (3)
  - Rash papular [Recovered/Resolved]
  - Drug ineffective [Unknown]
  - Pruritus [None]
